FAERS Safety Report 6100202-2 (Version None)
Quarter: 2009Q1

REPORT INFORMATION
  Report Type: 
  Country: None (occurrence: None)
  Receive Date: 20090303
  Receipt Date: 20090218
  Transmission Date: 20090719
  Serious: Yes (Other)
  Sender: FDA-Public Use
  Company Number: FR-ROCHE-609514

PATIENT
  Sex: Female
  Weight: 50 kg

DRUGS (4)
  1. BONIVA [Suspect]
     Route: 048
     Dates: start: 20080905, end: 20081005
  2. DAFALGAN [Interacting]
     Indication: ARTHRALGIA
     Dosage: INDICATION REPORTED AS PAIN OF ONE ARM
     Route: 048
     Dates: start: 20080701
  3. DAFALGAN [Interacting]
     Route: 048
     Dates: start: 20080901, end: 20081012
  4. SIMVASTATIN [Concomitant]
     Dosage: RECEIVED FOR MORE THAN ONE YEAR
     Route: 048
     Dates: start: 20070101, end: 20081007

REACTIONS (2)
  - DRUG INTERACTION [None]
  - HEPATITIS [None]
